FAERS Safety Report 5251347-0 (Version None)
Quarter: 2007Q1

REPORT INFORMATION
  Report Type: 
  Country: None (occurrence: None)
  Receive Date: 20070228
  Receipt Date: 20060425
  Transmission Date: 20070707
  Serious: No
  Sender: FDA-Public Use
  Company Number: US-GLAXOSMITHKLINE-A0603267A

PATIENT
  Age: 24 Year
  Sex: Female

DRUGS (5)
  1. LAMICTAL [Suspect]
     Indication: EPILEPSY
     Dosage: 50MG PER DAY
     Route: 048
     Dates: start: 20060416
  2. TOPAMAX [Concomitant]
  3. VITAMINS [Concomitant]
  4. ORTHO CYCLEN-28 [Concomitant]
  5. MAXALT [Concomitant]

REACTIONS (1)
  - NIGHTMARE [None]
